FAERS Safety Report 6015679-0 (Version None)
Quarter: 2008Q4

REPORT INFORMATION
  Report Type: 
  Country: None (occurrence: None)
  Receive Date: 20081222
  Receipt Date: 20081209
  Transmission Date: 20090506
  Serious: Yes (Hospitalization, Other)
  Sender: FDA-Public Use
  Company Number: US-PFIZER INC-2005085451

PATIENT
  Sex: Male
  Weight: 83.91 kg

DRUGS (7)
  1. CELEBREX [Suspect]
     Indication: OSTEOARTHRITIS
     Dosage: 200 MG, 1X/DAY
     Route: 048
     Dates: end: 20081208
  2. DIGOXIN [Suspect]
     Indication: ARRHYTHMIA
     Dosage: 0.25 MG, 1X/DAY
     Route: 065
     Dates: end: 20081208
  3. ALL OTHER THERAPEUTIC PRODUCTS [Suspect]
     Indication: PNEUMONIA
     Dosage: UNK
  4. WARFARIN SODIUM [Concomitant]
     Route: 065
  5. DILTIAZEM [Concomitant]
     Indication: BLOOD PRESSURE ABNORMAL
     Route: 065
  6. RANITIDINE [Concomitant]
     Indication: HIATUS HERNIA
     Route: 065
  7. ALBUTEROL [Concomitant]
     Indication: CHRONIC OBSTRUCTIVE PULMONARY DISEASE
     Route: 065

REACTIONS (7)
  - DRY SKIN [None]
  - HAEMORRHAGE [None]
  - MEAN CELL VOLUME INCREASED [None]
  - NAUSEA [None]
  - PAIN [None]
  - PNEUMONIA [None]
  - RED BLOOD CELL COUNT DECREASED [None]
